FAERS Safety Report 5248465-X (Version None)
Quarter: 2007Q1

REPORT INFORMATION
  Report Type: 
  Country: None (occurrence: None)
  Receive Date: 20070227
  Receipt Date: 20070215
  Transmission Date: 20070707
  Serious: Yes (Other)
  Sender: FDA-Public Use
  Company Number: US-PFIZER INC-2005068939

PATIENT
  Sex: Female
  Weight: 74.8 kg

DRUGS (8)
  1. CELEBREX [Suspect]
     Indication: OSTEOARTHRITIS
  2. DAYPRO CAPLET [Suspect]
  3. IBUPROFEN [Suspect]
  4. HYDROCODONE [Suspect]
     Indication: PAIN
  5. PREVACID [Concomitant]
  6. ATENOLOL [Concomitant]
  7. MAXZIDE [Concomitant]
  8. LIBRIUM [Concomitant]

REACTIONS (8)
  - DISSOCIATION [None]
  - DRUG INEFFECTIVE [None]
  - FALL [None]
  - GASTRIC ULCER [None]
  - GASTROOESOPHAGEAL REFLUX DISEASE [None]
  - HELICOBACTER INFECTION [None]
  - PAIN [None]
  - STOMACH DISCOMFORT [None]
